FAERS Safety Report 7275999-9 (Version None)
Quarter: 2011Q1

REPORT INFORMATION
  Report Type: 
  Country: None (occurrence: None)
  Receive Date: 20110204
  Receipt Date: 20110128
  Transmission Date: 20110831
  Serious: Yes (Death, Hospitalization)
  Sender: FDA-Public Use
  Company Number: B0690199A

PATIENT
  Sex: Female

DRUGS (13)
  1. PACLITAXEL [Concomitant]
     Dates: start: 20050114
  2. PACLITAXEL [Concomitant]
     Dates: start: 20050124
  3. CARBOPLATIN [Concomitant]
     Dates: start: 20050124
  4. CARBOPLATIN [Concomitant]
     Dates: start: 20050131
  5. ZANTAC [Suspect]
     Route: 065
     Dates: start: 20050111, end: 20050111
  6. ZANTAC [Suspect]
     Route: 065
     Dates: start: 20050124, end: 20050124
  7. PACLITAXEL [Concomitant]
     Dates: start: 20050131
  8. CARBOPLATIN [Concomitant]
     Dates: start: 20050114
  9. NITOROL [Concomitant]
     Indication: ANGINA PECTORIS
     Dosage: 15MG PER DAY
     Route: 048
     Dates: start: 20050113, end: 20050208
  10. ZANTAC [Suspect]
     Indication: HYPERSENSITIVITY
     Dosage: 50MG PER DAY
     Route: 065
     Dates: start: 20050131, end: 20050131
  11. HERBESSER [Concomitant]
     Indication: ANGINA PECTORIS
     Dosage: 90MG PER DAY
     Route: 048
     Dates: start: 20050113, end: 20050208
  12. BUFFERIN [Concomitant]
     Indication: ANGINA PECTORIS
     Dosage: 81MG PER DAY
     Route: 048
     Dates: start: 20050113, end: 20050208
  13. ISOTONIC SODIUM CHLORIDE SOLUTION [Concomitant]
     Dosage: 100ML PER DAY
     Route: 042
     Dates: start: 20050131, end: 20050131

REACTIONS (8)
  - VOMITING [None]
  - DIARRHOEA [None]
  - ANXIETY [None]
  - NAUSEA [None]
  - ANAPHYLACTIC REACTION [None]
  - BREAST CANCER RECURRENT [None]
  - BLOOD PRESSURE DECREASED [None]
  - CONVULSION [None]
